FAERS Safety Report 8867479 (Version 1)
Quarter: 2012Q4

REPORT INFORMATION
  Report Type: 
  Country: US (occurrence: US)
  Receive Date: 20121025
  Receipt Date: 20121025
  Transmission Date: 20130627
  Serious: No
  Sender: FDA-Public Use
  Company Number: US-AMGEN-USASP2012016906

PATIENT
  Age: 68 Year
  Sex: Female
  Weight: 102.4 kg

DRUGS (11)
  1. ENBREL [Suspect]
     Indication: RHEUMATOID ARTHRITIS
     Dosage: 50 mg, 2 times/wk
     Route: 058
  2. ENBREL [Suspect]
     Indication: PSORIATIC ARTHROPATHY
  3. FOLIC ACID [Concomitant]
     Dosage: UNK
  4. METHOTREXATE [Concomitant]
     Dosage: 2.5 mg, UNK
  5. TRAMADOL HCL [Concomitant]
     Dosage: 50 mg, UNK
  6. XANAX [Concomitant]
     Dosage: 1 mg, UNK
  7. MULTIVITAMIN                       /00097801/ [Concomitant]
     Dosage: UNK
  8. CALCIUM MAGNESIUM [Concomitant]
     Dosage: UNK
  9. POTASSIUM [Concomitant]
     Dosage: 99 mg, UNK
  10. OMEGA 3                            /01334101/ [Concomitant]
     Dosage: 1000 mg, UNK
  11. VITAMIN D /00107901/ [Concomitant]
     Dosage: 400 IU, UNK

REACTIONS (2)
  - Liver function test abnormal [Unknown]
  - Kidney infection [Unknown]
